FAERS Safety Report 21140390 (Version 10)
Quarter: 2023Q1

REPORT INFORMATION
  Report Type: Report from Study
  Country: KR (occurrence: None)
  Receive Date: 20220728
  Receipt Date: 20230314
  Transmission Date: 20230417
  Serious: Yes (Hospitalization)
  Sender: FDA-Public Use
  Company Number: KR-ROCHE-3133685

PATIENT
  Age: 74 Year
  Sex: Male
  Weight: 84.3 kg

DRUGS (36)
  1. MOSUNETUZUMAB [Suspect]
     Active Substance: MOSUNETUZUMAB
     Indication: Diffuse large B-cell lymphoma
     Dosage: START DATE OF MOST RECENT DOSE OF STUDY DRUG PRIOR TO SAE 22-JUN-2022 AT 6:00 PM?DOSE LAST STUDY DRU
     Route: 058
     Dates: start: 20220531
  2. POLATUZUMAB VEDOTIN [Suspect]
     Active Substance: POLATUZUMAB VEDOTIN
     Indication: Diffuse large B-cell lymphoma
     Dosage: START DATE OF MOST RECENT DOSE OF STUDY DRUG PRIOR TO SAE 22/JUN/2022.?DOSE LAST STUDY DRUG ADMIN PR
     Route: 042
     Dates: start: 20220531
  3. TOCILIZUMAB [Suspect]
     Active Substance: TOCILIZUMAB
     Indication: Cytokine release syndrome
     Route: 042
     Dates: start: 20220707
  4. TIRAMIDE [Concomitant]
     Route: 048
     Dates: start: 20220703, end: 20220706
  5. LINAGLIPTIN [Concomitant]
     Active Substance: LINAGLIPTIN
     Route: 048
  6. GLUCOPHAGE XR [Concomitant]
     Active Substance: METFORMIN HYDROCHLORIDE
     Route: 048
  7. LENOGRASTIM [Concomitant]
     Active Substance: LENOGRASTIM
     Route: 058
     Dates: start: 20220817, end: 20220817
  8. TACENOL 8HOURS ER [Concomitant]
     Route: 048
     Dates: start: 20220703, end: 20220705
  9. LOPAINE [Concomitant]
     Route: 048
     Dates: start: 20220703, end: 20220704
  10. CYCIN [Concomitant]
     Route: 048
     Dates: start: 20220703, end: 20220705
  11. ACETPHEN PREMIX [Concomitant]
     Route: 042
     Dates: start: 20220703, end: 20220703
  12. PANTOPRAZOLE SODIUM [Concomitant]
     Active Substance: PANTOPRAZOLE SODIUM
     Route: 042
     Dates: start: 20220703, end: 20220703
  13. MECKOOL [Concomitant]
     Route: 042
     Dates: start: 20220703, end: 20220703
  14. PROPACETAMOL HYDROCHLORIDE [Concomitant]
     Active Substance: PROPACETAMOL HYDROCHLORIDE
     Route: 042
     Dates: start: 20220705, end: 20220714
  15. PROPACETAMOL HYDROCHLORIDE [Concomitant]
     Active Substance: PROPACETAMOL HYDROCHLORIDE
     Route: 042
     Dates: start: 20220714, end: 20220801
  16. DULACKHAN EASY [Concomitant]
     Route: 048
     Dates: start: 20220706, end: 20220714
  17. SCD MAGNESIUM OXIDE [Concomitant]
     Route: 048
     Dates: start: 20220706, end: 20220712
  18. BORYUNG FLU [Concomitant]
     Route: 055
     Dates: start: 20220706, end: 20220712
  19. NAXEN F [Concomitant]
     Route: 048
     Dates: start: 20220707, end: 20220712
  20. TAZOPERAN [Concomitant]
     Route: 042
     Dates: start: 20220707, end: 20220721
  21. SULFAMETHOXAZOLE\TRIMETHOPRIM [Concomitant]
     Active Substance: SULFAMETHOXAZOLE\TRIMETHOPRIM
     Route: 042
     Dates: start: 20220710, end: 20220806
  22. PREDNISOLONE [Concomitant]
     Active Substance: PREDNISOLONE
     Route: 048
     Dates: start: 20220710, end: 20220714
  23. PREDNISOLONE [Concomitant]
     Active Substance: PREDNISOLONE
     Route: 048
     Dates: start: 20220716, end: 20220720
  24. PREDNISOLONE [Concomitant]
     Active Substance: PREDNISOLONE
     Route: 048
     Dates: start: 20220721, end: 20220725
  25. PREDNISOLONE [Concomitant]
     Active Substance: PREDNISOLONE
     Route: 048
     Dates: start: 20220726, end: 20220731
  26. PREDNISOLONE [Concomitant]
     Active Substance: PREDNISOLONE
     Route: 048
     Dates: start: 20220731, end: 20220805
  27. LEVOFLOXACIN [Concomitant]
     Active Substance: LEVOFLOXACIN
     Route: 042
     Dates: start: 20220712, end: 20220804
  28. AMARYL [Concomitant]
     Active Substance: GLIMEPIRIDE
     Route: 048
     Dates: start: 20220719, end: 20220722
  29. DONGA GASTER [Concomitant]
     Route: 048
     Dates: start: 20220714, end: 20220805
  30. DEXAMETHASONE [Concomitant]
     Active Substance: DEXAMETHASONE
     Route: 042
     Dates: start: 20220608, end: 20220608
  31. DEXAMETHASONE [Concomitant]
     Active Substance: DEXAMETHASONE
     Route: 042
     Dates: start: 20220615, end: 20220615
  32. DEXAMETHASONE [Concomitant]
     Active Substance: DEXAMETHASONE
     Route: 042
     Dates: start: 20220622, end: 20220622
  33. ACETAMINOPHEN [Concomitant]
     Active Substance: ACETAMINOPHEN
     Route: 048
     Dates: start: 20220622, end: 20220622
  34. MOSAPRIDE CITRATE [Concomitant]
     Active Substance: MOSAPRIDE CITRATE
     Route: 048
     Dates: start: 20220709, end: 20220805
  35. ACETYLCYSTEINE [Concomitant]
     Active Substance: ACETYLCYSTEINE
     Route: 048
     Dates: start: 20220719, end: 20220719
  36. V-GAVIR [Concomitant]
     Route: 048
     Dates: start: 20220805, end: 20220826

REACTIONS (4)
  - Diarrhoea [Recovered/Resolved]
  - Pneumonitis [Recovered/Resolved]
  - Cytomegalovirus infection [Recovered/Resolved]
  - Cytokine release syndrome [Recovered/Resolved]

NARRATIVE: CASE EVENT DATE: 20220703
